FAERS Safety Report 9640960 (Version 1)
Quarter: 2013Q4

REPORT INFORMATION
  Report Type: Report from Study
  Country: US (occurrence: US)
  Receive Date: 20131023
  Receipt Date: 20131023
  Transmission Date: 20140711
  Serious: No
  Sender: FDA-Public Use
  Company Number: US-ABBVIE-13P-163-1068423-00

PATIENT
  Sex: Female
  Weight: 67.19 kg

DRUGS (4)
  1. LUPRON DEPOT [Suspect]
     Indication: ENDOMETRIOSIS
     Dates: start: 2010, end: 2011
  2. LUPRON DEPOT [Suspect]
     Dates: start: 201211
  3. METFORMIN [Concomitant]
     Indication: PRODUCT USED FOR UNKNOWN INDICATION
  4. GLYBURIDE [Concomitant]
     Indication: PRODUCT USED FOR UNKNOWN INDICATION

REACTIONS (3)
  - Blood pressure diastolic increased [Not Recovered/Not Resolved]
  - Headache [Recovered/Resolved]
  - Pelvic pain [Recovered/Resolved]
